FAERS Safety Report 25734894 (Version 1)
Quarter: 2025Q3

REPORT INFORMATION
  Report Type: Spontaneous
  Country: CA (occurrence: CA)
  Receive Date: 20250828
  Receipt Date: 20250828
  Transmission Date: 20251021
  Serious: Yes (Life-Threatening, Hospitalization, Other)
  Sender: CSL BEHRING
  Company Number: CA-BEH-2025216494

PATIENT
  Age: 60 Year
  Sex: Female
  Weight: 115 kg

DRUGS (3)
  1. PRIVIGEN [Suspect]
     Active Substance: HUMAN IMMUNOGLOBULIN G
     Indication: Immunodeficiency common variable
     Route: 042
  2. PRIVIGEN [Suspect]
     Active Substance: HUMAN IMMUNOGLOBULIN G
     Route: 042
  3. PRIVIGEN [Suspect]
     Active Substance: HUMAN IMMUNOGLOBULIN G
     Route: 042

REACTIONS (17)
  - Allergic transfusion reaction [Recovered/Resolved]
  - Blood pressure diastolic decreased [Recovered/Resolved]
  - Blood pressure systolic increased [Recovered/Resolved]
  - Dysphagia [Recovered/Resolved]
  - Dysphonia [Recovered/Resolved]
  - Dyspnoea [Recovered/Resolved]
  - Erythema [Recovered/Resolved]
  - Heart rate increased [Recovered/Resolved]
  - Hypertension [Recovered/Resolved]
  - Obstructive airways disorder [Recovered/Resolved]
  - Rash erythematous [Recovered/Resolved]
  - Stridor [Recovered/Resolved]
  - Throat tightness [Recovered/Resolved]
  - Tongue disorder [Recovered/Resolved]
  - Tongue oedema [Recovered/Resolved]
  - Transfusion reaction [Recovered/Resolved]
  - Wheezing [Recovered/Resolved]
